FAERS Safety Report 11880806 (Version 1)
Quarter: 2015Q4

REPORT INFORMATION
  Report Type: Spontaneous
  Country: IT (occurrence: IT)
  Receive Date: 20151230
  Receipt Date: 20151230
  Transmission Date: 20160305
  Serious: Yes (Hospitalization)
  Sender: FDA-Public Use
  Company Number: IT-PFIZER INC-2015472402

PATIENT
  Age: 49 Year
  Sex: Male

DRUGS (4)
  1. XANAX [Suspect]
     Active Substance: ALPRAZOLAM
     Indication: SOCIAL PHOBIA
     Dosage: UNK
     Route: 048
     Dates: start: 19951223
  2. XANAX [Suspect]
     Active Substance: ALPRAZOLAM
     Dosage: 12 MG, DAILY
     Route: 048
     Dates: end: 20151223
  3. OPTALIDON /00109201/ [Suspect]
     Active Substance: ACETAMINOPHEN\CAFFEINE OR CAFFEINE\PROPYPHENAZONE OR IBUPROFEN
     Indication: HEADACHE
     Dosage: UNK
     Route: 048
     Dates: start: 20051223
  4. OPTALIDON /00109201/ [Suspect]
     Active Substance: ACETAMINOPHEN\CAFFEINE OR CAFFEINE\PROPYPHENAZONE OR IBUPROFEN
     Dosage: 12 DF, DAILY
     Route: 048
     Dates: end: 20151223

REACTIONS (1)
  - Drug dependence [Unknown]

NARRATIVE: CASE EVENT DATE: 20151223
